FAERS Safety Report 9072442 (Version 1)
Quarter: 2013Q1

REPORT INFORMATION
  Report Type: Report from Study
  Country: US (occurrence: US)
  Receive Date: 20130129
  Receipt Date: 20130129
  Transmission Date: 20140127
  Serious: No
  Sender: FDA-Public Use
  Company Number: US-ABBOTT-12P-163-0938184-00

PATIENT
  Age: 52 Year
  Sex: Female

DRUGS (6)
  1. HUMIRA 40 MG/0.8 ML PEN [Suspect]
     Indication: PSORIASIS
     Dates: start: 201203
  2. ATENOLOL [Concomitant]
     Indication: BLOOD PRESSURE
  3. LIPITOR [Concomitant]
     Indication: BLOOD CHOLESTEROL
  4. ACTOS [Concomitant]
     Indication: DIABETES MELLITUS
  5. GLIPIZIDE [Concomitant]
     Indication: DIABETES MELLITUS
  6. LISINOPRIL [Concomitant]
     Indication: PRODUCT USED FOR UNKNOWN INDICATION

REACTIONS (3)
  - Drug ineffective [Recovering/Resolving]
  - Scab [Unknown]
  - Skin exfoliation [Unknown]
